FAERS Safety Report 5066610-6 (Version None)
Quarter: 2006Q3

REPORT INFORMATION
  Report Type: 
  Country: None (occurrence: None)
  Receive Date: 20060728
  Receipt Date: 20060718
  Transmission Date: 20061208
  Serious: Yes (Other)
  Sender: FDA-Public Use
  Company Number: 2006088240

PATIENT
  Sex: Female
  Weight: 54.4316 kg

DRUGS (9)
  1. DEPO-PROVERA [Suspect]
     Indication: CONTRACEPTION
     Dosage: SEE IMAGE
     Dates: start: 20030101, end: 20030101
  2. DEPO-PROVERA [Suspect]
     Indication: IRON DEFICIENCY
     Dosage: SEE IMAGE
     Dates: start: 20030101, end: 20030101
  3. DEPO-PROVERA [Suspect]
     Indication: MENSTRUAL DISCOMFORT
     Dosage: SEE IMAGE
     Dates: start: 20030101, end: 20030101
  4. DEPO-PROVERA [Suspect]
     Indication: CONTRACEPTION
     Dosage: SEE IMAGE
     Dates: start: 20040101, end: 20040101
  5. DEPO-PROVERA [Suspect]
     Indication: IRON DEFICIENCY
     Dosage: SEE IMAGE
     Dates: start: 20040101, end: 20040101
  6. DEPO-PROVERA [Suspect]
     Indication: MENSTRUAL DISCOMFORT
     Dosage: SEE IMAGE
     Dates: start: 20040101, end: 20040101
  7. DEPO-PROVERA [Suspect]
     Indication: CONTRACEPTION
     Dosage: SEE IMAGE
     Dates: start: 20050101, end: 20050101
  8. DEPO-PROVERA [Suspect]
     Indication: IRON DEFICIENCY
     Dosage: SEE IMAGE
     Dates: start: 20050101, end: 20050101
  9. DEPO-PROVERA [Suspect]
     Indication: MENSTRUAL DISCOMFORT
     Dosage: SEE IMAGE
     Dates: start: 20050101, end: 20050101

REACTIONS (4)
  - LIBIDO DECREASED [None]
  - MOOD ALTERED [None]
  - OVARIAN ATROPHY [None]
  - WEIGHT INCREASED [None]
